FAERS Safety Report 10607318 (Version 1)
Quarter: 2014Q4

REPORT INFORMATION
  Report Type: Spontaneous
  Country: US (occurrence: US)
  Receive Date: 20141125
  Receipt Date: 20141125
  Transmission Date: 20150529
  Serious: No
  Sender: FDA-Public Use
  Company Number: US-SHIRE-US201407819

PATIENT
  Age: 24 Year
  Sex: Male
  Weight: 47.8 kg

DRUGS (1)
  1. ELAPRASE [Suspect]
     Active Substance: IDURSULFASE
     Indication: MUCOPOLYSACCHARIDOSIS II
     Dosage: 24 MG, 1X/WEEK
     Route: 041

REACTIONS (3)
  - Gait disturbance [Unknown]
  - Hernia [Unknown]
  - Dysuria [Unknown]

NARRATIVE: CASE EVENT DATE: 20141017
